FAERS Safety Report 9265241 (Version 1)
Quarter: 2013Q2

REPORT INFORMATION
  Report Type: Report from Study
  Country: US (occurrence: US)
  Receive Date: 20130501
  Receipt Date: 20130501
  Transmission Date: 20140414
  Serious: Yes (Death)
  Sender: FDA-Public Use
  Company Number: US-SANOFI-AVENTIS-2013SA044578

PATIENT
  Sex: 0

DRUGS (2)
  1. DOCETAXEL [Suspect]
     Indication: NON-SMALL CELL LUNG CANCER
     Dosage: ADMINISTERED AS A 60-MINUTE INTRAVENOUS INFUSION ON DAY 1 OF EVERY THREE-WEEK CYCLE
     Route: 042
  2. EVEROLIMUS [Suspect]
     Indication: NON-SMALL CELL LUNG CANCER
     Dosage: ADMINISTERED 5 MG/DAY ON DAY 1 TO 19 OF EVERY THREE-WEEK CYCLE
     Route: 065

REACTIONS (1)
  - Pulmonary embolism [Fatal]
